FAERS Safety Report 4704951-X (Version None)
Quarter: 2005Q3

REPORT INFORMATION
  Report Type: 
  Country: None (occurrence: None)
  Receive Date: 20050701
  Receipt Date: 20050622
  Transmission Date: 20060218
  Serious: Yes (Death)
  Sender: FDA-Public Use
  Company Number: TH-BOEHRINGER INGELHEIM PHARMACEUTICALS, INC.-2005-BP-10571BP

PATIENT
  Sex: Male
  Weight: 60 kg

DRUGS (9)
  1. MICARDIS [Suspect]
     Indication: CARDIOVASCULAR DISORDER
     Dates: start: 20030616
  2. MICARDIS [Suspect]
     Indication: CEREBROVASCULAR ACCIDENT PROPHYLAXIS
  3. RAMIPRIL [Suspect]
     Indication: CARDIOVASCULAR DISORDER
     Dates: start: 20030616, end: 20040201
  4. RAMIPRIL [Suspect]
     Indication: CEREBROVASCULAR ACCIDENT PROPHYLAXIS
  5. ISOSORBIDE DINITRATE [Concomitant]
  6. ASPIRIN [Concomitant]
  7. ATENOLOL [Concomitant]
  8. WARFARIN [Concomitant]
  9. PRAVASTATIN [Concomitant]

REACTIONS (5)
  - CARDIOGENIC SHOCK [None]
  - DEATH [None]
  - DYSPNOEA [None]
  - PEPTIC ULCER [None]
  - SEPSIS [None]
